FAERS Safety Report 15752879 (Version 2)
Quarter: 2019Q1

REPORT INFORMATION
  Report Type: Spontaneous
  Country: FR (occurrence: FR)
  Receive Date: 20181221
  Receipt Date: 20190125
  Transmission Date: 20190417
  Serious: Yes (Other)
  Sender: FDA-Public Use
  Company Number: FR-ALLERGAN-1858912US

PATIENT

DRUGS (2)
  1. URSODEOXYCHOLIC ACID UNK [Suspect]
     Active Substance: URSODIOL
     Indication: PRIMARY BILIARY CHOLANGITIS
     Dosage: 13-15 MG/KG/DAY FOR AT LEAST 6 MONTHS
     Route: 065
  2. BEZAFIBRATE UNK [Suspect]
     Active Substance: BEZAFIBRATE
     Indication: PRIMARY BILIARY CHOLANGITIS
     Dosage: 400 MG, QD
     Route: 065

REACTIONS (2)
  - Renal failure [Unknown]
  - Off label use [Unknown]
